FAERS Safety Report 9213895 (Version 1)
Quarter: 2013Q2

REPORT INFORMATION
  Report Type: Spontaneous
  Country: FR (occurrence: FR)
  Receive Date: 20130405
  Receipt Date: 20130405
  Transmission Date: 20140414
  Serious: Yes (Death, Hospitalization, Other)
  Sender: FDA-Public Use
  Company Number: FR-TEVA-395031ISR

PATIENT
  Age: 77 Year
  Sex: Female

DRUGS (12)
  1. AMIODARONE 200MG [Suspect]
     Indication: ARRHYTHMIA
     Dosage: 200 MILLIGRAM DAILY; 5 DAYS OVER 7 (EXCEPT ON SATURDAY AND SUNDAY)
     Route: 048
     Dates: start: 20120417
  2. SEROPLEX [Concomitant]
     Indication: DEPRESSION
     Route: 048
  3. ALPRAZOLAM [Concomitant]
     Indication: DEPRESSION
  4. LEVOTHYROX [Concomitant]
     Indication: THYROID DISORDER
     Dosage: .5 DOSAGE FORMS DAILY;
     Route: 048
  5. DOMPERIDONE [Concomitant]
     Indication: HIATUS HERNIA
     Route: 048
  6. OMEPRAZOLE [Concomitant]
     Indication: HIATUS HERNIA
     Route: 048
  7. ALTEISDUO [Concomitant]
     Route: 048
  8. NEBIVOLOL [Concomitant]
     Route: 048
  9. FUROSEMIDE [Concomitant]
     Indication: OEDEMA PERIPHERAL
     Dates: start: 201210
  10. NOCTAMIDE [Concomitant]
     Indication: SLEEP DISORDER
     Dates: start: 201210
  11. RIVOTRIL [Concomitant]
     Dates: start: 201210
  12. UNSPECIFIED ANALGESIC [Concomitant]

REACTIONS (10)
  - Pulmonary fibrosis [Fatal]
  - Dyspnoea [Not Recovered/Not Resolved]
  - General physical condition abnormal [Not Recovered/Not Resolved]
  - Myocardial ischaemia [Recovered/Resolved with Sequelae]
  - Decreased appetite [Unknown]
  - Cough [Unknown]
  - Fatigue [Unknown]
  - Diarrhoea [Unknown]
  - Tremor [Unknown]
  - Paraesthesia [Unknown]
